FAERS Safety Report 4804494-9 (Version None)
Quarter: 2005Q4

REPORT INFORMATION
  Report Type: 
  Country: None (occurrence: None)
  Receive Date: 20051017
  Receipt Date: 20051005
  Transmission Date: 20060501
  Serious: Yes (Life-Threatening, Hospitalization)
  Sender: FDA-Public Use
  Company Number: 2005-08-1288

PATIENT
  Age: 47 Year
  Sex: Male
  Weight: 78 kg

DRUGS (8)
  1. PEG-INTRON (PEGINTERFERON ALFA-2B) [Suspect]
     Indication: HEPATITIS C
     Dosage: 100 MCG QW SUBCUTANEOUS
     Route: 058
     Dates: start: 20050525, end: 20050810
  2. REBETOL [Suspect]
     Indication: HEPATITIS C
     Dosage: 800 MG ORAL
     Route: 048
     Dates: start: 20050525, end: 20050810
  3. BUCILLAMIE TABLETS [Concomitant]
  4. SELBEX GRANULES [Concomitant]
  5. ALDACTONE-A TABLETS [Concomitant]
  6. LASIX [Concomitant]
  7. LIVACT (ISOLEUCINE/LEUCINE/VALINE) GRANULES [Concomitant]
  8. ALOSITOL TABLETS [Concomitant]

REACTIONS (2)
  - ENCEPHALITIS [None]
  - LEUKOENCEPHALOMYELITIS [None]
